FAERS Safety Report 4704932-6 (Version None)
Quarter: 2005Q3

REPORT INFORMATION
  Report Type: 
  Country: None (occurrence: None)
  Receive Date: 20050701
  Receipt Date: 20050613
  Transmission Date: 20060218
  Serious: Yes (Other)
  Sender: FDA-Public Use
  Company Number: TH-BRISTOL-MYERS SQUIBB COMPANY-13003439

PATIENT
  Age: 37 Year
  Sex: Female

DRUGS (6)
  1. REYATAZ [Suspect]
     Indication: HIV INFECTION
     Route: 048
     Dates: start: 20050316, end: 20050319
  2. RITONAVIR [Suspect]
     Indication: HIV INFECTION
     Route: 048
     Dates: start: 20050316, end: 20050319
  3. DIDANOSINE [Concomitant]
  4. KALETRA [Concomitant]
     Dates: end: 20050401
  5. ZIDOVUDINE [Concomitant]
  6. FENOFIBRATE [Concomitant]

REACTIONS (2)
  - EYELID OEDEMA [None]
  - GENERALISED OEDEMA [None]
